FAERS Safety Report 7973320-1 (Version None)
Quarter: 2011Q4

REPORT INFORMATION
  Report Type: 
  Country: None (occurrence: None)
  Receive Date: 20111213
  Receipt Date: 20110510
  Transmission Date: 20120403
  Serious: No
  Sender: FDA-Public Use
  Company Number: US-AMGEN-USASP2011024250

PATIENT
  Sex: Male

DRUGS (9)
  1. METOPROLOL TARTRATE [Concomitant]
     Dosage: UNK
  2. MULTIPLE VITAMINS [Concomitant]
     Dosage: UNK
  3. PROSCAR [Concomitant]
     Dosage: UNK
  4. NORVASC [Concomitant]
     Dosage: UNK
  5. ARANESP [Suspect]
     Indication: ANAEMIA
     Dosage: 100 A?G, Q3WK
  6. HYTRIN [Concomitant]
     Dosage: UNK
  7. ASPIRIN [Concomitant]
     Dosage: UNK
  8. ZINC [Concomitant]
     Dosage: UNK
  9. PEPCID AC [Concomitant]
     Dosage: UNK

REACTIONS (4)
  - MALAISE [None]
  - HAEMOGLOBIN DECREASED [None]
  - HEART RATE DECREASED [None]
  - HYPOTENSION [None]
